FAERS Safety Report 8504681-2 (Version None)
Quarter: 2012Q3

REPORT INFORMATION
  Report Type: 
  Country: None (occurrence: None)
  Receive Date: 20120711
  Receipt Date: 20120626
  Transmission Date: 20120928
  Serious: Yes (Death, Other)
  Sender: FDA-Public Use
  Company Number: JP-ROCHE-1083237

PATIENT
  Sex: Male
  Weight: 53 kg

DRUGS (12)
  1. LASIX [Concomitant]
     Indication: RENAL IMPAIRMENT
     Route: 048
     Dates: start: 20101126, end: 20120609
  2. TARCEVA [Suspect]
     Indication: NON-SMALL CELL LUNG CANCER
     Route: 048
     Dates: start: 20101005, end: 20101125
  3. MINOCYCLINE HYDROCHLORIDE [Concomitant]
     Indication: RASH
     Route: 048
     Dates: start: 20101126, end: 20120609
  4. LORAZEPAM [Concomitant]
     Dosage: A DOSE
     Route: 048
     Dates: start: 20120529
  5. BIFIDOBACTERIUM [Concomitant]
     Indication: CONSTIPATION
     Route: 048
     Dates: start: 20101126, end: 20120609
  6. AVASTIN [Suspect]
     Indication: NON-SMALL CELL LUNG CANCER
     Route: 041
     Dates: start: 20120522, end: 20120522
  7. FAMOTIDINE [Concomitant]
     Indication: GASTRITIS
     Route: 048
     Dates: start: 20101126, end: 20120609
  8. TARCEVA [Suspect]
     Route: 048
     Dates: start: 20101126, end: 20120609
  9. VITAMIN B12 [Concomitant]
     Indication: NEUROPATHY PERIPHERAL
     Route: 048
     Dates: start: 20101126, end: 20120609
  10. CEREKINON [Concomitant]
     Indication: IRRITABLE BOWEL SYNDROME
     Route: 048
  11. DEXTROMETHORPHAN HYDROBROMIDE [Concomitant]
     Indication: BRONCHITIS
     Route: 048
     Dates: start: 20101126, end: 20120609
  12. ALLOPURINOL [Concomitant]
     Indication: GOUT
     Route: 048
     Dates: start: 20101126, end: 20120609

REACTIONS (11)
  - HICCUPS [None]
  - CONSTIPATION [None]
  - RASH [None]
  - GOUT [None]
  - NEUROPATHY PERIPHERAL [None]
  - GASTRITIS [None]
  - RENAL IMPAIRMENT [None]
  - IRRITABLE BOWEL SYNDROME [None]
  - NON-SMALL CELL LUNG CANCER [None]
  - SMALL INTESTINAL PERFORATION [None]
  - BRONCHITIS [None]
